FAERS Safety Report 14532282 (Version 1)
Quarter: 2018Q1

REPORT INFORMATION
  Report Type: Spontaneous
  Country: US (occurrence: US)
  Receive Date: 20180214
  Receipt Date: 20180214
  Transmission Date: 20180509
  Serious: Yes (Hospitalization)
  Sender: FDA-Public Use
  Company Number: US-FRESENIUS KABI-FK201801790

PATIENT
  Age: 71 Year
  Sex: Male

DRUGS (3)
  1. DEXAMETHASONE INJECTION (MANUFACTURER UNKNOWN) [Suspect]
     Active Substance: DEXAMETHASONE
     Indication: BACK PAIN
     Route: 008
  2. DEXAMETHASONE INJECTION (MANUFACTURER UNKNOWN) [Suspect]
     Active Substance: DEXAMETHASONE
     Route: 008
  3. BUPIVACAINE. [Concomitant]
     Active Substance: BUPIVACAINE
     Indication: BACK PAIN
     Route: 008

REACTIONS (5)
  - Osteomyelitis fungal [Recovered/Resolved]
  - Aspergillus infection [Recovered/Resolved]
  - Osteomyelitis [Recovered/Resolved]
  - Product use issue [Recovered/Resolved]
  - Orbital apex syndrome [Recovered/Resolved]
